FAERS Safety Report 25985872 (Version 1)
Quarter: 2025Q4

REPORT INFORMATION
  Report Type: Other
  Country: EU (occurrence: EU)
  Receive Date: 20251031
  Receipt Date: 20251031
  Transmission Date: 20260118
  Serious: Yes (Hospitalization, Other)
  Sender: APRECIA PHARMACEUTICALS
  Company Number: EU-Aprecia Pharmaceuticals-APRE20250234

PATIENT
  Age: 11 Year
  Sex: Male
  Weight: 35 kg

DRUGS (2)
  1. LEVETIRACETAM [Suspect]
     Active Substance: LEVETIRACETAM
     Indication: Seizure
     Dosage: INTRAVENOUS LOADING DOSE 30 MG/KG ADMINISTERED OVER 30 MINUTES ON DAY 3 OF HOSPITALIZATION - DILUTED
     Route: 042
  2. LEVETIRACETAM [Suspect]
     Active Substance: LEVETIRACETAM
     Dosage: INTRAVENOUS MAINTENANCE DOSE 10 MG/KG OVER 30 MINUTES ON HOSPITAL DAY 4 - DILUTED IN SODIUM CHLORIDE
     Route: 042

REACTIONS (7)
  - Metabolic acidosis [Recovered/Resolved]
  - Hypokalaemia [Recovered/Resolved]
  - Tachypnoea [Recovered/Resolved]
  - Tachycardia [Recovered/Resolved]
  - Hyperhidrosis [Recovered/Resolved]
  - Polyuria [Recovered/Resolved]
  - Respiratory alkalosis [Recovered/Resolved]
